FAERS Safety Report 9768944 (Version 2)
Quarter: 2013Q4

REPORT INFORMATION
  Report Type: Spontaneous
  Country: BE (occurrence: BE)
  Receive Date: 20131218
  Receipt Date: 20131231
  Transmission Date: 20140711
  Serious: Yes (Hospitalization, Other)
  Sender: FDA-Public Use
  Company Number: BE-AMGEN-BELSP2013087591

PATIENT
  Age: 76 Year
  Sex: Female
  Weight: 62 kg

DRUGS (2)
  1. PROLIA [Suspect]
     Indication: OSTEOPOROSIS
     Dosage: 60 MG, Q6MO
     Route: 058
     Dates: start: 201201, end: 20131210
  2. LIPANTHYL [Concomitant]
     Indication: HYPERCHOLESTEROLAEMIA
     Dosage: 534 MG, QD
     Route: 048

REACTIONS (1)
  - Diverticulitis [Recovered/Resolved]
